FAERS Safety Report 7584278-1 (Version None)
Quarter: 2011Q2

REPORT INFORMATION
  Report Type: 
  Country: None (occurrence: None)
  Receive Date: 20110630
  Receipt Date: 20110624
  Transmission Date: 20111010
  Serious: Yes (Death, Hospitalization)
  Sender: FDA-Public Use
  Company Number: JP-ELI_LILLY_AND_COMPANY-JP201105007051

PATIENT
  Sex: Male
  Weight: 50 kg

DRUGS (12)
  1. ALIMTA [Suspect]
     Indication: LUNG ADENOCARCINOMA STAGE IV
     Dosage: 700 MG, UNK
     Route: 042
     Dates: start: 20110407, end: 20110407
  2. FAMOTIDINE [Concomitant]
     Indication: ABDOMINAL PAIN UPPER
     Dosage: 20 MG, QD
     Route: 048
     Dates: start: 20110222, end: 20110523
  3. TRANSAMIN [Concomitant]
     Indication: HAEMOPTYSIS
     Dosage: 750 MG, QD
     Route: 048
     Dates: start: 20110125, end: 20110523
  4. MAGNESIUM OXIDE [Concomitant]
     Indication: CONSTIPATION
     Dosage: 2 G, QD
     Route: 048
     Dates: start: 20110222, end: 20110523
  5. CELECOXIB [Concomitant]
     Indication: CANCER PAIN
     Dosage: 200 MG, QD
     Route: 048
     Dates: start: 20110222, end: 20110523
  6. OXYCONTIN [Concomitant]
     Indication: CANCER PAIN
     Dosage: 40 MG, QD
     Route: 048
     Dates: start: 20110222, end: 20110523
  7. OXYCODONE HCL [Concomitant]
     Indication: CANCER PAIN
     Dosage: UNK, PRN
     Route: 048
     Dates: start: 20110222, end: 20110523
  8. PROCHLORPERAZINE [Concomitant]
     Indication: NAUSEA
     Dosage: 15 MG, QD
     Route: 048
     Dates: start: 20110222, end: 20110523
  9. PANVITAN [Concomitant]
     Dosage: 1 G, QD, 0.5 MG DAILY AS FOLIC ACID
     Route: 048
     Dates: start: 20110330, end: 20110523
  10. METHYCOBAL [Concomitant]
     Dosage: 1000 UG, UNK
     Route: 030
     Dates: start: 20110330, end: 20110330
  11. ALIMTA [Suspect]
     Dosage: 700 MG, UNK
     Route: 042
     Dates: start: 20110428, end: 20110428
  12. ADONA [Concomitant]
     Indication: HAEMOPTYSIS
     Dosage: 90 MG, QD
     Route: 048
     Dates: start: 20110125, end: 20110523

REACTIONS (5)
  - ACUTE RESPIRATORY DISTRESS SYNDROME [None]
  - PYREXIA [None]
  - PLEURAL EFFUSION [None]
  - LUNG DISORDER [None]
  - NEUTROPHIL COUNT DECREASED [None]
